FAERS Safety Report 25739776 (Version 1)
Quarter: 2025Q3

REPORT INFORMATION
  Report Type: Spontaneous
  Country: EU (occurrence: EU)
  Receive Date: 20250829
  Receipt Date: 20250829
  Transmission Date: 20251021
  Serious: Yes (Life-Threatening, Other)
  Sender: MYLAN
  Company Number: EU-RBHC-20-25-DEU-RB-0001380

PATIENT
  Age: 75 Year
  Sex: Male

DRUGS (16)
  1. ATORVASTATIN [Suspect]
     Active Substance: ATORVASTATIN
     Indication: Product used for unknown indication
     Dosage: 1 DOSAGE FORM,(24 HOURS) QD(ONE DOSAGE FORM; SINGLE)
     Dates: start: 20241104, end: 20241104
  2. ATORVASTATIN [Suspect]
     Active Substance: ATORVASTATIN
     Dosage: 1 DOSAGE FORM,(24 HOURS) QD(ONE DOSAGE FORM; SINGLE)
     Route: 048
     Dates: start: 20241104, end: 20241104
  3. ATORVASTATIN [Suspect]
     Active Substance: ATORVASTATIN
     Dosage: 1 DOSAGE FORM,(24 HOURS) QD(ONE DOSAGE FORM; SINGLE)
     Route: 048
     Dates: start: 20241104, end: 20241104
  4. ATORVASTATIN [Suspect]
     Active Substance: ATORVASTATIN
     Dosage: 1 DOSAGE FORM,(24 HOURS) QD(ONE DOSAGE FORM; SINGLE)
     Dates: start: 20241104, end: 20241104
  5. GAVISCON [Suspect]
     Active Substance: ALUMINUM HYDROXIDE\MAGNESIUM CARBONATE
     Indication: Product used for unknown indication
     Dosage: 1 DOSAGE FORM, (24 HOURS) QD (SINGLE, 500 MG / 213 MG / 325 MG)
     Dates: start: 20241104, end: 20241104
  6. GAVISCON [Suspect]
     Active Substance: ALUMINUM HYDROXIDE\MAGNESIUM CARBONATE
     Dosage: 1 DOSAGE FORM, (24 HOURS) QD (SINGLE, 500 MG / 213 MG / 325 MG)
     Route: 048
     Dates: start: 20241104, end: 20241104
  7. GAVISCON [Suspect]
     Active Substance: ALUMINUM HYDROXIDE\MAGNESIUM CARBONATE
     Dosage: 1 DOSAGE FORM, (24 HOURS) QD (SINGLE, 500 MG / 213 MG / 325 MG)
     Route: 048
     Dates: start: 20241104, end: 20241104
  8. GAVISCON [Suspect]
     Active Substance: ALUMINUM HYDROXIDE\MAGNESIUM CARBONATE
     Dosage: 1 DOSAGE FORM, (24 HOURS) QD (SINGLE, 500 MG / 213 MG / 325 MG)
     Dates: start: 20241104, end: 20241104
  9. EUTHYROX [Concomitant]
     Active Substance: LEVOTHYROXINE SODIUM
     Indication: Thyroidectomy
     Dosage: 1 DOSAGE FORM, QD
     Dates: start: 2015
  10. EUTHYROX [Concomitant]
     Active Substance: LEVOTHYROXINE SODIUM
     Dosage: 1 DOSAGE FORM, QD
     Route: 048
     Dates: start: 2015
  11. EUTHYROX [Concomitant]
     Active Substance: LEVOTHYROXINE SODIUM
     Dosage: 1 DOSAGE FORM, QD
     Route: 048
     Dates: start: 2015
  12. EUTHYROX [Concomitant]
     Active Substance: LEVOTHYROXINE SODIUM
     Dosage: 1 DOSAGE FORM, QD
     Dates: start: 2015
  13. IBUPROFEN [Concomitant]
     Active Substance: IBUPROFEN
     Indication: Osteoarthritis
     Dosage: 2 DOSAGE FORM, QD (TAKING SINCE MANY YEARS)
  14. IBUPROFEN [Concomitant]
     Active Substance: IBUPROFEN
     Indication: Pain
     Dosage: 2 DOSAGE FORM, QD (TAKING SINCE MANY YEARS)
     Route: 048
  15. IBUPROFEN [Concomitant]
     Active Substance: IBUPROFEN
     Dosage: 2 DOSAGE FORM, QD (TAKING SINCE MANY YEARS)
     Route: 048
  16. IBUPROFEN [Concomitant]
     Active Substance: IBUPROFEN
     Dosage: 2 DOSAGE FORM, QD (TAKING SINCE MANY YEARS)

REACTIONS (5)
  - Anaphylactic shock [Recovered/Resolved]
  - Hypertension [Recovered/Resolved]
  - Palpitations [Recovered/Resolved]
  - Dyspnoea [Recovered/Resolved]
  - Pruritus [Recovered/Resolved]

NARRATIVE: CASE EVENT DATE: 20241105
